FAERS Safety Report 5364672-X (Version None)
Quarter: 2007Q2

REPORT INFORMATION
  Report Type: 
  Country: None (occurrence: None)
  Receive Date: 20070621
  Receipt Date: 20070618
  Transmission Date: 20071010
  Serious: Yes (Death, Other)
  Sender: FDA-Public Use
  Company Number: PHBS2007JP10186

PATIENT
  Age: 70 Year
  Sex: Male

DRUGS (3)
  1. VOLTAREN [Suspect]
     Dosage: 25 MG/DAY
     Route: 054
     Dates: start: 20060801, end: 20060901
  2. VOLTAREN [Suspect]
     Dosage: 50 MG/DAY
     Route: 054
     Dates: start: 20060901, end: 20060901
  3. TEGRETOL [Suspect]
     Dosage: 100 MG/DAY
     Route: 048

REACTIONS (3)
  - LIVER DISORDER [None]
  - OCULOMUCOCUTANEOUS SYNDROME [None]
  - SEPSIS [None]
